FAERS Safety Report 9434233 (Version 1)
Quarter: 2013Q3

REPORT INFORMATION
  Report Type: Spontaneous
  Country: US (occurrence: None)
  Receive Date: 20130730
  Receipt Date: 20130730
  Transmission Date: 20140515
  Serious: Yes (Life-Threatening, Hospitalization, Disabling)
  Sender: FDA-Public Use
  Company Number: None

PATIENT
  Age: 58 Year
  Sex: Female
  Weight: 77 kg

DRUGS (1)
  1. GEMCITABINE [Suspect]
     Indication: UTERINE LEIOMYOSARCOMA
     Route: 042
     Dates: start: 20130101, end: 20130621

REACTIONS (2)
  - Thrombotic thrombocytopenic purpura [None]
  - Haemodialysis [None]
